FAERS Safety Report 19491357 (Version 1)
Quarter: 2021Q3

REPORT INFORMATION
  Report Type: Spontaneous
  Country: FR (occurrence: FR)
  Receive Date: 20210705
  Receipt Date: 20210705
  Transmission Date: 20211014
  Serious: Yes (Other)
  Sender: FDA-Public Use
  Company Number: FR-ACCORD-230511

PATIENT
  Age: 3 Year
  Sex: Female

DRUGS (5)
  1. CLONIDINE. [Suspect]
     Active Substance: CLONIDINE
     Indication: HEART DISEASE CONGENITAL
     Dates: end: 20210409
  2. VALGANCICLOVIR/VALGANCICLOVIR HYDROCHLORIDE [Suspect]
     Active Substance: VALGANCICLOVIR
     Indication: PNEUMONIA CYTOMEGALOVIRAL
     Dates: start: 20210307, end: 20210409
  3. LORAZEPAM. [Suspect]
     Active Substance: LORAZEPAM
     Indication: WITHDRAWAL SYNDROME
     Dates: end: 20210409
  4. HYDROCHLOROTHIAZIDE. [Suspect]
     Active Substance: HYDROCHLOROTHIAZIDE
     Indication: HEART DISEASE CONGENITAL
     Dates: start: 20210404
  5. HYDROCHLOROTHIAZIDE. [Suspect]
     Active Substance: HYDROCHLOROTHIAZIDE
     Indication: HEART DISEASE CONGENITAL
     Dates: end: 20210327

REACTIONS (1)
  - Hepatic cytolysis [Not Recovered/Not Resolved]

NARRATIVE: CASE EVENT DATE: 20210408
